FAERS Safety Report 4313536-9 (Version None)
Quarter: 2004Q1

REPORT INFORMATION
  Report Type: 
  Country: None (occurrence: None)
  Receive Date: 20040308
  Receipt Date: 20040224
  Transmission Date: 20041129
  Serious: Yes (Other)
  Sender: FDA-Public Use
  Company Number: GB-GLAXOSMITHKLINE-B0324650A

PATIENT
  Age: 30 Year
  Sex: Female

DRUGS (2)
  1. COMBIVIR [Suspect]
     Indication: SYSTEMIC ANTIVIRAL TREATMENT
     Dosage: 2TAB PER DAY
     Route: 048
     Dates: start: 20031124
  2. NEVIRAPINE [Suspect]
     Indication: SYSTEMIC ANTIVIRAL TREATMENT
     Dosage: 400MG PER DAY
     Route: 048
     Dates: start: 20031124

REACTIONS (3)
  - HEPATOTOXICITY [None]
  - MATERNAL DRUGS AFFECTING FOETUS [None]
  - STILLBIRTH [None]
